FAERS Safety Report 9739066 (Version 2)
Quarter: 2013Q4

REPORT INFORMATION
  Report Type: Spontaneous
  Country: US (occurrence: US)
  Receive Date: 20131209
  Receipt Date: 20131209
  Transmission Date: 20140711
  Serious: No
  Sender: FDA-Public Use
  Company Number: US-ASTRAZENECA-2012SE28519

PATIENT
  Age: 65 Year
  Sex: Male
  Weight: 90.3 kg

DRUGS (13)
  1. NEXIUM [Suspect]
     Indication: BARRETT^S OESOPHAGUS
     Route: 048
     Dates: start: 2001
  2. NEXIUM [Suspect]
     Indication: GASTROOESOPHAGEAL REFLUX DISEASE
     Route: 048
     Dates: start: 2001
  3. PRILOSEC [Suspect]
     Indication: BARRETT^S OESOPHAGUS
     Route: 048
     Dates: start: 1995, end: 2001
  4. PRILOSEC [Suspect]
     Indication: GASTROOESOPHAGEAL REFLUX DISEASE
     Route: 048
     Dates: start: 1995, end: 2001
  5. LEVOTHYROXINE [Concomitant]
     Indication: HYPOTHYROIDISM
  6. CHOLESTEROL PILL [Concomitant]
     Indication: BLOOD CHOLESTEROL ABNORMAL
  7. ALLOPURINOL [Concomitant]
     Indication: GOUT
  8. METFORMIN [Concomitant]
     Indication: DIABETES MELLITUS
  9. JANUVIA [Concomitant]
     Indication: DIABETES MELLITUS
  10. IRBESARTAN [Concomitant]
     Indication: HYPERTENSION
  11. HYDROCHLOROT [Concomitant]
     Indication: DIURETIC THERAPY
  12. FENOFIBRATE [Concomitant]
     Indication: BLOOD CHOLESTEROL ABNORMAL
  13. ATORVASTATIN [Concomitant]
     Indication: BLOOD CHOLESTEROL ABNORMAL

REACTIONS (16)
  - Condition aggravated [Unknown]
  - Hypothyroidism [Unknown]
  - Regurgitation [Unknown]
  - Gastrooesophageal reflux disease [Unknown]
  - Adverse event [Unknown]
  - Thyroid disorder [Not Recovered/Not Resolved]
  - Diabetes mellitus [Not Recovered/Not Resolved]
  - Blood triglycerides increased [Not Recovered/Not Resolved]
  - Chest pain [Recovered/Resolved]
  - Blood uric acid increased [Not Recovered/Not Resolved]
  - Pain in extremity [Recovered/Resolved]
  - Sleep disorder due to a general medical condition [Recovered/Resolved]
  - Body height decreased [Unknown]
  - Drug ineffective [Unknown]
  - Off label use [Unknown]
  - Drug dose omission [Unknown]
